FAERS Safety Report 6174019-7 (Version None)
Quarter: 2009Q2

REPORT INFORMATION
  Report Type: 
  Country: None (occurrence: None)
  Receive Date: 20090430
  Receipt Date: 20080724
  Transmission Date: 20091009
  Serious: Yes (Other)
  Sender: FDA-Public Use
  Company Number: US-ASTRAZENECA-2008AC01854

PATIENT
  Age: 9 Year
  Sex: Female

DRUGS (11)
  1. ESOMEPRAZOLE MAGNESIUM [Suspect]
  2. GATIFLOXACIN [Concomitant]
     Indication: CNS VENTRICULITIS
  3. GATIFLOXACIN [Concomitant]
     Indication: CENTRAL NERVOUS SYSTEM INFLAMMATION
  4. TRIMETHOPRIM + SULFAMETHOXAZOLE [Concomitant]
     Indication: CNS VENTRICULITIS
  5. TRIMETHOPRIM + SULFAMETHOXAZOLE [Concomitant]
     Indication: CENTRAL NERVOUS SYSTEM INFLAMMATION
  6. AMIKACIN [Concomitant]
     Indication: CNS VENTRICULITIS
     Route: 042
  7. AMIKACIN [Concomitant]
     Indication: CENTRAL NERVOUS SYSTEM INFLAMMATION
     Route: 042
  8. AMPICILLIN [Concomitant]
     Indication: CNS VENTRICULITIS
     Route: 042
  9. AMPICILLIN [Concomitant]
     Indication: CENTRAL NERVOUS SYSTEM INFLAMMATION
     Route: 042
  10. LINEZOLID [Concomitant]
     Indication: CNS VENTRICULITIS
     Route: 042
  11. LINEZOLID [Concomitant]
     Indication: CENTRAL NERVOUS SYSTEM INFLAMMATION
     Route: 042

REACTIONS (1)
  - PANCREATITIS [None]
